FAERS Safety Report 15586558 (Version 1)
Quarter: 2018Q4

REPORT INFORMATION
  Report Type: Spontaneous
  Country: DE (occurrence: DE)
  Receive Date: 20181105
  Receipt Date: 20181105
  Transmission Date: 20190205
  Serious: Yes (Death, Hospitalization)
  Sender: FDA-Public Use
  Company Number: DE-PURDUE-GBR-2010-0061193

PATIENT
  Age: 70 Year
  Sex: Male
  Weight: 82 kg

DRUGS (19)
  1. BISOPROLOL [Concomitant]
     Active Substance: BISOPROLOL
     Indication: CORONARY ARTERY DISEASE
     Dosage: 10 MG, DAILY
     Route: 048
     Dates: start: 1998
  2. NITRO-SPRAY [Concomitant]
     Active Substance: ISOSORBIDE DINITRATE
     Indication: CORONARY ARTERY DISEASE
     Dosage: 0.8 MG (DOSAGE FORM: SOLUTION 0.8MG)
     Route: 048
     Dates: start: 1998
  3. TRYASOL CODEIN [Suspect]
     Active Substance: CODEINE PHOSPHATE
     Indication: BRONCHIAL CARCINOMA
     Dosage: 120 DROP, DAILY
     Route: 048
     Dates: start: 201001, end: 20100311
  4. NOVAMINSULFON [Concomitant]
     Active Substance: METAMIZOLE
     Indication: PAIN
     Dosage: 120 DROP, DAILY (DOSAGE FORM: SOLUTION)
     Route: 048
     Dates: start: 2009
  5. L-THYROX [Concomitant]
     Active Substance: LEVOTHYROXINE SODIUM
     Indication: HYPOTHYROIDISM
     Dosage: 125 MCG, UNK
     Route: 048
  6. NEORECORMON [Concomitant]
     Active Substance: ERYTHROPOIETIN
     Indication: NEPHROGENIC ANAEMIA
     Dosage: 4000 IU, DAILY (SAMSTAG)
     Route: 058
     Dates: start: 2008
  7. BONDIOL [Concomitant]
     Active Substance: ALFACALCIDOL
     Indication: CHRONIC KIDNEY DISEASE-MINERAL AND BONE DISORDER
     Dosage: 25 MCG, DAILY
     Route: 048
     Dates: start: 2008
  8. DICLOFENAC [Concomitant]
     Active Substance: DICLOFENAC
     Indication: OSTEOARTHRITIS
     Route: 048
  9. ALLOPURINOL. [Concomitant]
     Active Substance: ALLOPURINOL
     Indication: RENAL IMPAIRMENT
     Dosage: 330 MG, DAILY
     Route: 048
     Dates: start: 2008
  10. TORASEMID [Concomitant]
     Active Substance: TORSEMIDE
     Indication: HYPERTENSION
     Dosage: 40 MG, DAILY
     Route: 048
     Dates: start: 2000
  11. SEVREDOL [Suspect]
     Active Substance: MORPHINE
     Indication: PAIN
     Dosage: 10 MG, Q8H (MAX. ALLE 8 H)
     Route: 048
     Dates: start: 201001, end: 20100311
  12. ACC                                /00082801/ [Concomitant]
     Active Substance: ACETYLCYSTEINE
     Indication: BRONCHIAL CARCINOMA
     Dosage: 600 MG, DAILY
     Route: 048
     Dates: start: 2009
  13. ASPIRIN. [Concomitant]
     Active Substance: ASPIRIN
     Indication: CORONARY ARTERY DISEASE
     Dosage: 100 MG, DAILY
     Route: 048
     Dates: start: 1998
  14. ATACAND [Concomitant]
     Active Substance: CANDESARTAN CILEXETIL
     Dosage: 16 MG, PM
     Route: 048
  15. PANTOPRAZOL [Concomitant]
     Active Substance: PANTOPRAZOLE SODIUM
     Indication: PROPHYLAXIS AGAINST GASTROINTESTINAL ULCER
     Dosage: 40 MG, DAILY
     Route: 048
     Dates: start: 1998
  16. DEXAMETHASONE. [Concomitant]
     Active Substance: DEXAMETHASONE
     Indication: BRONCHIAL CARCINOMA
     Dosage: 4 MG, DAILY
     Route: 048
     Dates: start: 200904
  17. LOCOL [Concomitant]
     Indication: HYPERLIPIDAEMIA
     Dosage: 80 MG, DAILY
     Route: 048
     Dates: start: 1998
  18. FENTANYL. [Suspect]
     Active Substance: FENTANYL
     Indication: PAIN
     Dosage: 5 MG, Q3D (25 MCG/H)
     Route: 062
     Dates: start: 200912, end: 20100311
  19. ATACAND [Concomitant]
     Active Substance: CANDESARTAN CILEXETIL
     Indication: CARDIAC FAILURE CHRONIC
     Dosage: 8 MG, AM
     Route: 048

REACTIONS (8)
  - Somnolence [Unknown]
  - Pneumonia [Unknown]
  - Urinary retention [Unknown]
  - Death [Fatal]
  - General physical health deterioration [Unknown]
  - Overdose [Unknown]
  - Miosis [Unknown]
  - Acute kidney injury [Unknown]

NARRATIVE: CASE EVENT DATE: 20100310
